FAERS Safety Report 23723711 (Version 2)
Quarter: 2024Q3

REPORT INFORMATION
  Report Type: Spontaneous
  Country: CH (occurrence: CH)
  Receive Date: 20240409
  Receipt Date: 20240711
  Transmission Date: 20241017
  Serious: Yes (Life-Threatening, Other)
  Sender: PFIZER
  Company Number: CH-PFIZER INC-202100932996

PATIENT
  Age: 29 Year
  Sex: Female

DRUGS (1)
  1. CYTOTEC [Suspect]
     Active Substance: MISOPROSTOL
     Indication: Labour induction
     Dosage: UNK
     Dates: start: 20090311

REACTIONS (2)
  - Uterine rupture [Unknown]
  - Off label use [Unknown]

NARRATIVE: CASE EVENT DATE: 20090311
